FAERS Safety Report 23297775 (Version 1)
Quarter: 2023Q4

REPORT INFORMATION
  Report Type: Spontaneous
  Country: FR (occurrence: FR)
  Receive Date: 20231214
  Receipt Date: 20231214
  Transmission Date: 20240110
  Serious: Yes (Life-Threatening, Other)
  Sender: FDA-Public Use
  Company Number: FR-AFSSAPS-PV2023001137

PATIENT
  Age: 57 Year
  Sex: Female
  Weight: 71 kg

DRUGS (9)
  1. LIDOCAINE [Suspect]
     Active Substance: LIDOCAINE
     Indication: Anaesthesia
     Dosage: UNK, 1 TOTAL
     Route: 042
     Dates: start: 20231115, end: 20231115
  2. BRIDION [Suspect]
     Active Substance: SUGAMMADEX
     Indication: Anaesthesia
     Dosage: UNK, 1 TOTAL
     Route: 042
     Dates: start: 20231115, end: 20231115
  3. SUFENTANIL [Suspect]
     Active Substance: SUFENTANIL
     Indication: Anaesthesia
     Dosage: UNK, 1 TOTAL
     Route: 042
     Dates: start: 20231115, end: 20231115
  4. ESKETAMINE [Suspect]
     Active Substance: ESKETAMINE
     Indication: Anaesthesia
     Dosage: UNK, 1 TOTAL
     Route: 042
     Dates: start: 20231115, end: 20231115
  5. ROCURONIUM BROMIDE [Suspect]
     Active Substance: ROCURONIUM BROMIDE
     Indication: Anaesthesia
     Dosage: UNK, 1 TOTAL
     Route: 042
     Dates: start: 20231115, end: 20231115
  6. PROPOFOL [Suspect]
     Active Substance: PROPOFOL
     Indication: Anaesthesia
     Dosage: UNK, 1 TOTAL
     Route: 042
     Dates: start: 20231115, end: 20231115
  7. Orocal [Concomitant]
     Indication: Product used for unknown indication
     Dosage: UNK
     Route: 065
  8. CHOLECALCIFEROL\SODIUM FLUORIDE [Concomitant]
     Active Substance: CHOLECALCIFEROL\SODIUM FLUORIDE
     Indication: Product used for unknown indication
     Dosage: UNK
     Route: 065
  9. COLCHICINE [Concomitant]
     Active Substance: COLCHICINE
     Indication: Product used for unknown indication
     Dosage: UNK
     Route: 065

REACTIONS (1)
  - Anaphylactic shock [Recovered/Resolved]

NARRATIVE: CASE EVENT DATE: 20231115
